FAERS Safety Report 8560010-X (Version None)
Quarter: 2012Q3

REPORT INFORMATION
  Report Type: 
  Country: None (occurrence: None)
  Receive Date: 20120802
  Receipt Date: 20120723
  Transmission Date: 20120928
  Serious: Yes (Hospitalization)
  Sender: FDA-Public Use
  Company Number: NL-SANOFI-AVENTIS-2012SA052228

PATIENT
  Age: 62 Year
  Sex: Male

DRUGS (7)
  1. FLUTICASONE FUROATE [Concomitant]
     Dosage: INHALATION
     Route: 055
  2. FUROSEMIDE [Suspect]
     Dosage: TAKING SEVERAL TABLETS PER DAY
     Route: 065
  3. SALMETEROL [Concomitant]
     Dosage: INHALATION
     Route: 055
  4. PERINDOPRIL ERBUMINE [Suspect]
     Indication: HYPERTENSION
     Route: 065
  5. SPIRONOLACTONE [Concomitant]
     Indication: HYPERTENSION
  6. LIQUORICE [Suspect]
     Dosage: DAILY DOSE: APPROXIMATELY 300 G
     Route: 065
  7. TIOTROPIUM [Concomitant]
     Route: 055

REACTIONS (16)
  - BLOOD CHLORIDE DECREASED [None]
  - DYSPNOEA [None]
  - BLOOD CREATININE INCREASED [None]
  - HYPOKALAEMIA [None]
  - METABOLIC ALKALOSIS [None]
  - BLOOD BICARBONATE INCREASED [None]
  - HYPERTENSION [None]
  - DRUG ABUSE [None]
  - VENTRICULAR TACHYCARDIA [None]
  - BLOOD PH INCREASED [None]
  - GLOMERULAR FILTRATION RATE DECREASED [None]
  - CHRONIC OBSTRUCTIVE PULMONARY DISEASE [None]
  - HYPONATRAEMIA [None]
  - PCO2 INCREASED [None]
  - BLOOD UREA INCREASED [None]
  - OEDEMA [None]
